FAERS Safety Report 4965869-0 (Version None)
Quarter: 2006Q2

REPORT INFORMATION
  Report Type: 
  Country: None (occurrence: None)
  Receive Date: 20060406
  Receipt Date: 20060406
  Transmission Date: 20061013
  Serious: Yes (Other)
  Sender: FDA-Public Use
  Company Number: None

PATIENT
  Age: 42 Year
  Sex: Female
  Weight: 112.0385 kg

DRUGS (5)
  1. GEODON [Suspect]
     Indication: MAJOR DEPRESSION
     Dosage: 60 MG TWICE A DAY PO
     Route: 048
     Dates: start: 20021017, end: 20060409
  2. CARBAZEPINE [Concomitant]
  3. BUPROPION HCL [Concomitant]
  4. BENZTROPINE MESYLATE [Concomitant]
  5. LORAZEPAM [Concomitant]

REACTIONS (4)
  - AKATHISIA [None]
  - INCORRECT DOSE ADMINISTERED [None]
  - MOVEMENT DISORDER [None]
  - TARDIVE DYSKINESIA [None]
